FAERS Safety Report 4452067-2 (Version None)
Quarter: 2004Q3

REPORT INFORMATION
  Report Type: 
  Country: None (occurrence: None)
  Receive Date: 20040813
  Receipt Date: 20040421
  Transmission Date: 20050211
  Serious: No
  Sender: FDA-Public Use
  Company Number: S04-USA-03527-01

PATIENT
  Age: 99 Year
  Sex: Female

DRUGS (13)
  1. NAMENDA [Suspect]
     Indication: VASCULAR DEMENTIA
     Dosage: 5 MG QD PO
     Route: 048
     Dates: start: 20040324, end: 20040330
  2. NAMENDA [Suspect]
     Indication: VASCULAR DEMENTIA
     Dosage: 5 MG QD PO
     Route: 048
     Dates: start: 20040414, end: 20040417
  3. NAMENDA [Suspect]
     Indication: VASCULAR DEMENTIA
     Dosage: 5 MG QD PO
     Route: 048
     Dates: start: 20040418, end: 20040421
  4. NAMENDA [Suspect]
     Indication: VASCULAR DEMENTIA
     Dosage: 5 MG QD PO
     Route: 048
     Dates: start: 20040422
  5. NAMENDA [Suspect]
     Indication: VASCULAR DEMENTIA
     Dosage: 10 MG QD PO
     Route: 048
     Dates: start: 20040331, end: 20040406
  6. NAMENDA [Suspect]
     Indication: VASCULAR DEMENTIA
     Dosage: 15 MG QD PO
     Route: 048
     Dates: start: 20040407, end: 20040413
  7. NAMENDA [Suspect]
     Indication: VASCULAR DEMENTIA
     Dosage: 20 MG QD PO
     Route: 048
     Dates: start: 20040414, end: 20040417
  8. NAMENDA [Suspect]
     Indication: VASCULAR DEMENTIA
     Dosage: 10 MG QD PO
     Route: 048
     Dates: start: 20040418, end: 20040421
  9. NAMENDA [Suspect]
     Indication: VASCULAR DEMENTIA
     Dosage: 20 MG QD PO
     Route: 048
     Dates: start: 20040422
  10. SEROQUEL [Concomitant]
  11. TRAZODONE HCL [Concomitant]
  12. ATIVAN [Concomitant]
  13. ANBIEN (ZOLPIDEM TARTRATE) [Concomitant]

REACTIONS (3)
  - ASTHENIA [None]
  - DIFFICULTY IN WALKING [None]
  - NERVOUSNESS [None]
